FAERS Safety Report 5235474-X (Version None)
Quarter: 2007Q1

REPORT INFORMATION
  Report Type: 
  Country: None (occurrence: None)
  Receive Date: 20070212
  Receipt Date: 20070202
  Transmission Date: 20070707
  Serious: Yes (Death)
  Sender: FDA-Public Use
  Company Number: GBWYE209517JAN07

PATIENT
  Sex: Female
  Weight: 78 kg

DRUGS (4)
  1. ENBREL [Suspect]
     Indication: RHEUMATOID ARTHRITIS
     Route: 058
     Dates: start: 20040709
  2. CO-DYDRAMOL [Concomitant]
     Dosage: UNKNOWN
  3. FOLIC ACID [Concomitant]
     Dosage: UNKNOWN
  4. METHOTREXATE [Concomitant]
     Dosage: UNKNOWN

REACTIONS (2)
  - ARTERITIS [None]
  - RESPIRATORY TRACT HAEMORRHAGE [None]
